FAERS Safety Report 25893762 (Version 4)
Quarter: 2025Q4

REPORT INFORMATION
  Report Type: Spontaneous
  Country: JP (occurrence: JP)
  Receive Date: 20251008
  Receipt Date: 20251229
  Transmission Date: 20260118
  Serious: No
  Sender: ASTELLAS
  Company Number: JP-ASTELLAS-2025-AER-019503

PATIENT
  Age: 67 Year
  Sex: Male

DRUGS (3)
  1. VYLOY [Suspect]
     Active Substance: ZOLBETUXIMAB-CLZB
     Indication: Gastric cancer
     Route: 065
     Dates: start: 20250319
  2. OXALIPLATIN [Suspect]
     Active Substance: OXALIPLATIN
     Indication: Product used for unknown indication
     Route: 065
     Dates: start: 20250319
  3. CYMBALTA [Concomitant]
     Active Substance: DULOXETINE HYDROCHLORIDE
     Indication: Hypoaesthesia
     Route: 065

REACTIONS (9)
  - Globulins decreased [Not Recovered/Not Resolved]
  - Blood albumin decreased [Recovering/Resolving]
  - Abdominal pain upper [Recovered/Resolved]
  - Dizziness [Recovered/Resolved]
  - Erythema [Unknown]
  - Oedema peripheral [Unknown]
  - Erythema [Recovered/Resolved]
  - Hypoaesthesia [Recovering/Resolving]
  - Abdominal pain upper [Recovered/Resolved]

NARRATIVE: CASE EVENT DATE: 20250402
